FAERS Safety Report 15435514 (Version 1)
Quarter: 2018Q3

REPORT INFORMATION
  Report Type: Spontaneous
  Country: TR (occurrence: TR)
  Receive Date: 20180927
  Receipt Date: 20180927
  Transmission Date: 20181010
  Serious: Yes (Other)
  Sender: FDA-Public Use
  Company Number: TR-TAKEDA-2018TUS026952

PATIENT
  Age: 43 Year
  Sex: Female

DRUGS (2)
  1. BRINTELLIX [Suspect]
     Active Substance: VORTIOXETINE HYDROBROMIDE
     Dosage: 10 MG, QD
     Route: 065
  2. BRINTELLIX [Suspect]
     Active Substance: VORTIOXETINE HYDROBROMIDE
     Indication: MAJOR DEPRESSION
     Dosage: 5 MG, QD
     Route: 065

REACTIONS (5)
  - Petechiae [Recovered/Resolved]
  - Ecchymosis [Recovered/Resolved]
  - Drug hypersensitivity [Recovered/Resolved]
  - Pruritus generalised [Recovered/Resolved]
  - Oedema [Recovered/Resolved]
